FAERS Safety Report 7747272-3 (Version None)
Quarter: 2011Q3

REPORT INFORMATION
  Report Type: 
  Country: None (occurrence: None)
  Receive Date: 20110913
  Receipt Date: 20110908
  Transmission Date: 20111222
  Serious: Yes (Other)
  Sender: FDA-Public Use
  Company Number: US-PFIZER INC-2011211996

PATIENT
  Sex: Female

DRUGS (2)
  1. SULFASALAZINE [Suspect]
     Dosage: UNK
  2. ENBREL [Suspect]
     Dosage: UNK

REACTIONS (7)
  - DYSKINESIA [None]
  - HYPERSOMNIA [None]
  - ABSCESS [None]
  - STAPHYLOCOCCAL INFECTION [None]
  - OSTEOMYELITIS [None]
  - MUSCULOSKELETAL STIFFNESS [None]
  - TINNITUS [None]
